FAERS Safety Report 12757650 (Version 1)
Quarter: 2016Q3

REPORT INFORMATION
  Report Type: Spontaneous
  Country: AT (occurrence: AT)
  Receive Date: 20160919
  Receipt Date: 20160919
  Transmission Date: 20161109
  Serious: Yes (Death, Other)
  Sender: FDA-Public Use
  Company Number: AT-JAZZ-2016-AT-017412

PATIENT
  Age: 58 Year
  Sex: Male

DRUGS (3)
  1. DEFITELIO [Suspect]
     Active Substance: DEFIBROTIDE SODIUM
     Indication: VENOOCCLUSIVE LIVER DISEASE
     Dosage: UNK
     Dates: start: 20151217
  2. CYCLOSPORIN [Concomitant]
     Active Substance: CYCLOSPORINE
     Indication: PROPHYLAXIS AGAINST GRAFT VERSUS HOST DISEASE
  3. MYCOPHENOLATE MOFETIL HCL [Concomitant]
     Active Substance: MYCOPHENOLATE MOFETIL HYDROCHLORIDE
     Indication: PROPHYLAXIS AGAINST GRAFT VERSUS HOST DISEASE

REACTIONS (2)
  - Multiple organ dysfunction syndrome [Unknown]
  - Death [Fatal]

NARRATIVE: CASE EVENT DATE: 20151221
